FAERS Safety Report 9785034 (Version 1)
Quarter: 2013Q4

REPORT INFORMATION
  Report Type: Spontaneous
  Country: US (occurrence: US)
  Receive Date: 20131227
  Receipt Date: 20131227
  Transmission Date: 20140711
  Serious: No
  Sender: FDA-Public Use
  Company Number: US-009507513-1312USA010764

PATIENT
  Age: 77 Year
  Sex: Female

DRUGS (3)
  1. COSOPT [Suspect]
     Dosage: UNK
     Route: 047
  2. ALPHAGAN P [Suspect]
     Indication: GLAUCOMA
     Dosage: 2 GTT, BID
     Route: 047
     Dates: start: 2012
  3. METOPROLOL [Concomitant]
     Indication: CARDIAC DISORDER

REACTIONS (6)
  - Eye discharge [Not Recovered/Not Resolved]
  - Visual impairment [Not Recovered/Not Resolved]
  - Conjunctivitis [Not Recovered/Not Resolved]
  - Eye irritation [Not Recovered/Not Resolved]
  - Eye pain [Not Recovered/Not Resolved]
  - Eye pain [Not Recovered/Not Resolved]
